FAERS Safety Report 6201074-8 (Version None)
Quarter: 2009Q2

REPORT INFORMATION
  Report Type: 
  Country: None (occurrence: None)
  Receive Date: 20090526
  Receipt Date: 20090520
  Transmission Date: 20091009
  Serious: Yes (Hospitalization, Other)
  Sender: FDA-Public Use
  Company Number: US-BRISTOL-MYERS SQUIBB COMPANY-14567234

PATIENT
  Age: 45 Year
  Sex: Female
  Weight: 90 kg

DRUGS (4)
  1. ERBITUX [Suspect]
     Indication: CERVIX CARCINOMA
     Dosage: FIRST COURSE ON 16FEB09;  400MG/M2 INITIAL LOADING-WEEK 1, THEN 250MG/M2X5 WEEKS
     Dates: start: 20090323, end: 20090323
  2. CISPLATIN [Suspect]
     Indication: CERVIX CARCINOMA
     Dosage: INITIAL DOSE: 16FEB2009 6TH CYCLE WAS INTERRUPTED FREQ: WEEKLY FOR 6 WEEKS
     Dates: start: 20090216, end: 20090216
  3. RADIATION THERAPY [Suspect]
     Indication: CERVIX CARCINOMA
     Dosage: 1 DF = 4860 CGY; NO OF FRACTIONS 28; NO OF ELASPSED DAYS 29
     Dates: start: 20090326, end: 20090326
  4. DILAUDID [Suspect]

REACTIONS (6)
  - ABDOMINAL PAIN [None]
  - DEPRESSED LEVEL OF CONSCIOUSNESS [None]
  - EMBOLISM [None]
  - HAEMATOMA [None]
  - HAEMOGLOBIN DECREASED [None]
  - NEUTROPHIL COUNT DECREASED [None]
